FAERS Safety Report 16837902 (Version 1)
Quarter: 2019Q3

REPORT INFORMATION
  Report Type: Spontaneous
  Country: US (occurrence: US)
  Receive Date: 20190923
  Receipt Date: 20190923
  Transmission Date: 20191005
  Serious: Yes (Death, Life-Threatening, Hospitalization)
  Sender: FDA-Public Use
  Company Number: US-EMCURE PHARMACEUTICALS LTD-2019-EPL-0674

PATIENT
  Age: 79 Year
  Sex: Female

DRUGS (3)
  1. CEFEPIME [Concomitant]
     Active Substance: CEFEPIME HYDROCHLORIDE
     Indication: POSTOPERATIVE WOUND INFECTION
  2. VANCOMYCIN HYDROCHLORIDE. [Suspect]
     Active Substance: VANCOMYCIN HYDROCHLORIDE
     Dosage: SHE WAS TREATED SUPPORTIVELY WITH FLUIDS AND CONTINUED ON VANCOMYCIN
  3. VANCOMYCIN HYDROCHLORIDE. [Suspect]
     Active Substance: VANCOMYCIN HYDROCHLORIDE
     Indication: POSTOPERATIVE WOUND INFECTION
     Dosage: VANCOMYCIN STOPPED A WEEK PRIOR TO THE HOSPITAL VISIT DUE TO WORSENING RENAL FUNCTION

REACTIONS (3)
  - Drug reaction with eosinophilia and systemic symptoms [Fatal]
  - Renal impairment [Unknown]
  - Multiple organ dysfunction syndrome [Fatal]
